FAERS Safety Report 18185558 (Version 1)
Quarter: 2020Q3

REPORT INFORMATION
  Report Type: Spontaneous
  Country: IT (occurrence: IT)
  Receive Date: 20200824
  Receipt Date: 20200824
  Transmission Date: 20201103
  Serious: Yes (Death, Other)
  Sender: FDA-Public Use
  Company Number: IT-TEVA-2020-IT-1817949

PATIENT
  Age: 48 Year
  Sex: Female

DRUGS (7)
  1. FLUVOXAMINE [Suspect]
     Active Substance: FLUVOXAMINE
     Indication: COMPLETED SUICIDE
  2. HALOPERIDOL. [Suspect]
     Active Substance: HALOPERIDOL
     Indication: PSYCHOTIC DISORDER
     Dosage: 2 MG/ML DAILY (10 DROPS TWICE A DAY)
     Route: 065
  3. CLOTIAPINE [Suspect]
     Active Substance: CLOTHIAPINE
     Indication: PSYCHOTIC DISORDER
     Dosage: AS NEEDED 100MG/ML (20 DROPS)
     Route: 065
  4. PROPRANOLOL HYDROCHLORIDE. [Concomitant]
     Active Substance: PROPRANOLOL HYDROCHLORIDE
     Indication: PRODUCT USED FOR UNKNOWN INDICATION
     Dosage: 40 MILLIGRAM DAILY;
     Route: 065
  5. GABAPENTIN. [Suspect]
     Active Substance: GABAPENTIN
     Indication: PSYCHOTIC DISORDER
     Dosage: 600 MILLIGRAM DAILY;
     Route: 065
  6. FLUVOXAMINE [Suspect]
     Active Substance: FLUVOXAMINE
     Indication: PSYCHOTIC DISORDER
     Dosage: 150 MILLIGRAM DAILY;
     Route: 048
  7. CLONAZEPAM. [Suspect]
     Active Substance: CLONAZEPAM
     Indication: PSYCHOTIC DISORDER
     Dosage: 2.5 MG/ML (20 DROPS THREE TIMES A DAY)
     Route: 065

REACTIONS (9)
  - Aspiration of gastric residual [Fatal]
  - Toxicity to various agents [Fatal]
  - Asphyxia [Fatal]
  - Pulmonary alveolar haemorrhage [Fatal]
  - Visceral congestion [Not Recovered/Not Resolved]
  - Vomiting [Recovered/Resolved]
  - Completed suicide [Fatal]
  - Intentional overdose [Fatal]
  - Unresponsive to stimuli [Not Recovered/Not Resolved]
